FAERS Safety Report 6612341-8 (Version None)
Quarter: 2010Q1

REPORT INFORMATION
  Report Type: 
  Country: None (occurrence: None)
  Receive Date: 20100303
  Receipt Date: 20100225
  Transmission Date: 20100710
  Serious: Yes (Hospitalization)
  Sender: FDA-Public Use
  Company Number: DE-EISAI INC.-E2090-00999-SPO-DE

PATIENT
  Sex: Female

DRUGS (5)
  1. ZONEGRAN [Suspect]
     Indication: EPILEPSY
     Route: 048
     Dates: start: 20100115, end: 20100130
  2. VALPROIC ACID [Suspect]
     Indication: EPILEPSY
     Route: 048
     Dates: start: 20050101
  3. TAVOR EXPIDET 0.5MG [Concomitant]
     Indication: DRUG USE FOR UNKNOWN INDICATION
     Route: 048
  4. MIRTAZAPINE [Concomitant]
     Indication: DRUG USE FOR UNKNOWN INDICATION
     Route: 048
  5. LAMOTRIGINE [Concomitant]

REACTIONS (3)
  - DRUG INTERACTION [None]
  - HYPONATRAEMIA [None]
  - POLYDIPSIA [None]
